FAERS Safety Report 8502214-8 (Version None)
Quarter: 2012Q2

REPORT INFORMATION
  Report Type: 
  Country: None (occurrence: None)
  Receive Date: 20120405
  Receipt Date: 20100628
  Transmission Date: 20120825
  Serious: Yes (Other)
  Sender: FDA-Public Use
  Company Number: PHHY2010US29302

PATIENT
  Age: 58 Year
  Sex: Female

DRUGS (1)
  1. RECLAST [Suspect]
     Indication: OSTEOPOROSIS
     Dosage: INFUSION

REACTIONS (13)
  - EYELID OEDEMA [None]
  - EYE PAIN [None]
  - PHOTOPHOBIA [None]
  - INFLUENZA LIKE ILLNESS [None]
  - ERYTHEMA [None]
  - EYELID PTOSIS [None]
  - SCLERITIS [None]
  - UVEITIS [None]
  - EYE DISORDER [None]
  - METAMORPHOPSIA [None]
  - SCLERAL OEDEMA [None]
  - LACRIMATION INCREASED [None]
  - VISION BLURRED [None]
